FAERS Safety Report 5585773-7 (Version None)
Quarter: 2008Q1

REPORT INFORMATION
  Report Type: 
  Country: None (occurrence: None)
  Receive Date: 20080109
  Receipt Date: 20080107
  Transmission Date: 20080703
  Serious: Yes (Other)
  Sender: FDA-Public Use
  Company Number: FR-BRISTOL-MYERS SQUIBB COMPANY-13909015

PATIENT
  Age: 65 Year
  Sex: Female
  Weight: 86 kg

DRUGS (1)
  1. SPRYCEL [Suspect]
     Indication: CHRONIC MYELOID LEUKAEMIA
     Dosage: RESTARTED WITH REDUCED DOSE OF 40MG/D ON 05OCT07 AND STOPPED ON 29OCT07
     Route: 048
     Dates: start: 20070711, end: 20071029

REACTIONS (2)
  - APLASIA [None]
  - PLEURAL EFFUSION [None]
